FAERS Safety Report 10017056 (Version 1)
Quarter: 2014Q1

REPORT INFORMATION
  Report Type: Spontaneous
  Country: US (occurrence: US)
  Receive Date: 20140318
  Receipt Date: 20140318
  Transmission Date: 20141002
  Serious: No
  Sender: FDA-Public Use
  Company Number: US-BIOGENIDEC-2014BI023905

PATIENT
  Age: 61 Year
  Sex: Female

DRUGS (31)
  1. AVONEX [Suspect]
     Indication: MULTIPLE SCLEROSIS
     Route: 030
     Dates: start: 20120301
  2. ALPRAZOLAM [Concomitant]
  3. ASACOL [Concomitant]
  4. BACLOFEN [Concomitant]
  5. CIPRO [Concomitant]
  6. CLOBETASOL PROPIONATE [Concomitant]
  7. COLOCORT [Concomitant]
  8. CYCLOBENZAPRINE HCL [Concomitant]
  9. DEXEDRINE [Concomitant]
  10. DIVIGEL [Concomitant]
  11. ELIDEL [Concomitant]
  12. FLUCONAZOLE [Concomitant]
  13. FLUTICASONE PROPIONATE [Concomitant]
  14. HYDROCHLOROTHIAZIDE [Concomitant]
  15. LEVOTHYROXINE SODIUM [Concomitant]
  16. LYSINE [Concomitant]
  17. MELATONIN [Concomitant]
  18. MISOPROSTOL [Concomitant]
  19. MORPHINE SULFATE [Concomitant]
  20. OMEPRAZOLE [Concomitant]
  21. OXYBUTYNIN [Concomitant]
  22. OXYCODONE HCL [Concomitant]
  23. OXYCONTIN [Concomitant]
  24. PROGESTERONE [Concomitant]
  25. PYRIDUM [Concomitant]
  26. SIMVASTATIN [Concomitant]
  27. TESTOSTERONE ISOCAPROATE [Concomitant]
  28. VITAMIN C [Concomitant]
  29. VITAMIN D [Concomitant]
  30. XANAX [Concomitant]
  31. ZOVIRAX [Concomitant]

REACTIONS (3)
  - Diplopia [Recovered/Resolved]
  - Gait disturbance [Recovered/Resolved]
  - Asthenia [Recovered/Resolved]
